FAERS Safety Report 13574520 (Version 2)
Quarter: 2017Q2

REPORT INFORMATION
  Report Type: Spontaneous
  Country: DE (occurrence: DE)
  Receive Date: 20170523
  Receipt Date: 20170616
  Transmission Date: 20170830
  Serious: Yes (Other)
  Sender: FDA-Public Use
  Company Number: DE-PFIZER INC-2017218756

PATIENT
  Age: 74 Year
  Sex: Male

DRUGS (5)
  1. CARVEDILOL. [Concomitant]
     Active Substance: CARVEDILOL
     Dosage: 0.5 DF, DAILY
  2. TRYASOL CODEIN [Concomitant]
     Dosage: 20 GTT, DAILY
  3. XARELTO [Concomitant]
     Active Substance: RIVAROXABAN
     Dosage: 1 DF, DAILY
  4. EXFORGE [Concomitant]
     Active Substance: AMLODIPINE BESYLATE\VALSARTAN
     Dosage: 1 DF, DAILY
  5. UNACID PD [Suspect]
     Active Substance: SULTAMICILLIN TOSYLATE
     Indication: BRONCHITIS
     Dosage: 2 DF, 2X/DAY
     Route: 048

REACTIONS (6)
  - Face oedema [Recovered/Resolved]
  - Scrotal oedema [Recovered/Resolved]
  - Pneumonia [Unknown]
  - Bronchitis [Unknown]
  - Eyelid oedema [Recovered/Resolved]
  - Rash generalised [Recovered/Resolved]
